FAERS Safety Report 13807214 (Version 8)
Quarter: 2020Q4

REPORT INFORMATION
  Report Type: Spontaneous
  Country: US (occurrence: US)
  Receive Date: 20170728
  Receipt Date: 20201012
  Transmission Date: 20210113
  Serious: Yes (Hospitalization, Other)
  Sender: FDA-Public Use
  Company Number: US-PFIZER INC-2017327786

PATIENT
  Age: 48 Year
  Sex: Male
  Weight: 107 kg

DRUGS (12)
  1. XELJANZ XR [Suspect]
     Active Substance: TOFACITINIB CITRATE
     Indication: RHEUMATOID ARTHRITIS
     Dosage: 11 MG, 1X/DAY
     Route: 048
     Dates: start: 2017, end: 2017
  2. CLOPIDOGREL [Concomitant]
     Active Substance: CLOPIDOGREL BISULFATE
     Indication: CARDIAC DISORDER
     Dosage: 75 MG, 1X/DAY (75MG TAKE ONCE DAILY BY MOUTH)
     Route: 048
  3. ASPIRIN. [Concomitant]
     Active Substance: ASPIRIN
     Indication: CARDIAC DISORDER
     Dosage: 81 MG, 1X/DAY (81MG TAKE ONCE DIALY BY MOUTH)
     Route: 048
  4. XELJANZ [Suspect]
     Active Substance: TOFACITINIB CITRATE
     Indication: RHEUMATOID ARTHRITIS
     Dosage: 5 MG, 1X/DAY
     Route: 048
  5. METHOTREXATE. [Concomitant]
     Active Substance: METHOTREXATE
     Indication: ARTHRITIS
     Dosage: 1 ML, WEEKLY
  6. ALLOPURINOL. [Concomitant]
     Active Substance: ALLOPURINOL
     Indication: ARTHRITIS
     Dosage: 400 MG, DAILY (100MG AND 300MG; TAKE 400MG DAILY BY MOUTH)
     Route: 048
  7. XELJANZ XR [Suspect]
     Active Substance: TOFACITINIB CITRATE
     Dosage: 11 MG, DAILY
     Route: 048
  8. METHOTREXATE. [Concomitant]
     Active Substance: METHOTREXATE
     Indication: RHEUMATOID ARTHRITIS
     Dosage: 25 MG, WEEKLY
     Route: 058
  9. METOPROLOL. [Concomitant]
     Active Substance: METOPROLOL
     Indication: STENT PLACEMENT
     Dosage: 200 MG, 1X/DAY (200MG TAKE ONCE DAILY BY MOUTH)
     Route: 048
  10. PREDNISONE. [Concomitant]
     Active Substance: PREDNISONE
     Indication: ARTHRITIS
     Dosage: 2 MG, 1X/DAY (2MG; TAKE ONCE DAILY BY MOUTH)
     Route: 048
  11. LOSARTAN. [Concomitant]
     Active Substance: LOSARTAN
     Indication: CARDIAC DISORDER
     Dosage: 25 MG, 1X/DAY (25MG TAKE ONCE DAILY BY MOUTH)
     Route: 048
  12. ROSUVASTATIN. [Concomitant]
     Active Substance: ROSUVASTATIN
     Indication: BLOOD CHOLESTEROL ABNORMAL
     Dosage: 40 MG, 1X/DAY (40MG; TAKE ONCE DAILY BY MOUTH)
     Route: 048

REACTIONS (8)
  - Hypertension [Unknown]
  - Blood test abnormal [Unknown]
  - Renal impairment [Unknown]
  - Cardiac failure [Recovered/Resolved]
  - Condition aggravated [Unknown]
  - Blood cholesterol increased [Unknown]
  - Gait disturbance [Unknown]
  - Blood creatinine increased [Unknown]

NARRATIVE: CASE EVENT DATE: 201707
